FAERS Safety Report 6887683-1 (Version None)
Quarter: 2010Q3

REPORT INFORMATION
  Report Type: 
  Country: None (occurrence: None)
  Receive Date: 20100728
  Receipt Date: 20100714
  Transmission Date: 20110219
  Serious: Yes (Other)
  Sender: FDA-Public Use
  Company Number: TPA2010A04067

PATIENT
  Age: 71 Year
  Sex: Female

DRUGS (10)
  1. PREVACID [Suspect]
     Indication: PRODUCT USED FOR UNKNOWN INDICATION
     Dosage: 30 MG, 1 IN 1 D,  PER ORAL
     Route: 048
     Dates: start: 20100101
  2. BRICANYL [Concomitant]
  3. HYDROCHLOROTHIAZIDE [Concomitant]
  4. SIMVASTATIN [Concomitant]
  5. DIOVAN [Concomitant]
  6. IBUPROFEN [Concomitant]
  7. ZOVIRAX CREAM (ACICLOVZR SODIUM) [Concomitant]
  8. ZANTAC 150 [Concomitant]
  9. ACETAMINOPHEN [Concomitant]
  10. TRAMACET (ALL OTHER THERAPEUTIC PRODUCTS) [Concomitant]

REACTIONS (1)
  - GALLBLADDER OPERATION [None]
